FAERS Safety Report 5339436-3 (Version None)
Quarter: 2007Q2

REPORT INFORMATION
  Report Type: 
  Country: None (occurrence: None)
  Receive Date: 20070404
  Receipt Date: 20060714
  Transmission Date: 20071010
  Serious: Yes (Hospitalization, Other)
  Sender: FDA-Public Use
  Company Number: 2006077242

PATIENT
  Age: 25 Year
  Sex: Female

DRUGS (2)
  1. GEODON [Suspect]
     Indication: MOOD SWINGS
     Dosage: 40 MG (20 MG, 2 IN 1 D), ORAL
     Route: 048
     Dates: start: 20060606, end: 20060607
  2. SEROQUEL [Concomitant]

REACTIONS (6)
  - DYSKINESIA [None]
  - DYSTONIA [None]
  - FACE OEDEMA [None]
  - HYPERSENSITIVITY [None]
  - HYPERTONIA [None]
  - SWOLLEN TONGUE [None]
